FAERS Safety Report 7541634-5 (Version None)
Quarter: 2011Q2

REPORT INFORMATION
  Report Type: 
  Country: None (occurrence: None)
  Receive Date: 20110613
  Receipt Date: 20110607
  Transmission Date: 20111010
  Serious: Yes (Life-Threatening, Other)
  Sender: FDA-Public Use
  Company Number: GB-ELI_LILLY_AND_COMPANY-GB201106001686

PATIENT
  Age: 9 Year
  Sex: Male
  Weight: 39 kg

DRUGS (4)
  1. IBUPROFEN [Concomitant]
     Dosage: UNK
     Dates: start: 20110504, end: 20110505
  2. MELATONIN [Concomitant]
     Dosage: UNK
     Dates: start: 20110321
  3. ATOMOXETINE HCL [Suspect]
     Indication: ILL-DEFINED DISORDER
     Dosage: UNK
     Dates: start: 20110321
  4. ATOMOXETINE HCL [Suspect]
     Dosage: UNK
     Dates: start: 20110525

REACTIONS (6)
  - DYSPNOEA [None]
  - PALLOR [None]
  - HYPERHIDROSIS [None]
  - PALPITATIONS [None]
  - SYNCOPE [None]
  - ELECTROCARDIOGRAM QT PROLONGED [None]
